FAERS Safety Report 25305479 (Version 1)
Quarter: 2025Q2

REPORT INFORMATION
  Report Type: Spontaneous
  Country: US (occurrence: US)
  Receive Date: 20250513
  Receipt Date: 20250513
  Transmission Date: 20250717
  Serious: No
  Sender: BAYER HEALTHCARE PHARMACEUTICALS INC.
  Company Number: US-BAYER-2025A063721

PATIENT
  Age: 44 Year
  Sex: Male

DRUGS (3)
  1. CIPROFLOXACIN [Suspect]
     Active Substance: CIPROFLOXACIN
     Indication: Malacoplakia
  2. RIFABUTIN [Concomitant]
     Active Substance: RIFABUTIN
  3. AZITHROMYCIN [Concomitant]
     Active Substance: AZITHROMYCIN

REACTIONS (2)
  - Product use in unapproved indication [None]
  - Product prescribing issue [None]
